FAERS Safety Report 4999618-7 (Version None)
Quarter: 2006Q2

REPORT INFORMATION
  Report Type: 
  Country: None (occurrence: None)
  Receive Date: 20060511
  Receipt Date: 20060214
  Transmission Date: 20061013
  Serious: Yes (Hospitalization)
  Sender: FDA-Public Use
  Company Number: US-MERCK-0602USA04293

PATIENT
  Age: 70 Year
  Sex: Female
  Weight: 91 kg

DRUGS (13)
  1. VIOXX [Suspect]
     Indication: PAIN
     Route: 048
     Dates: start: 20020101, end: 20040924
  2. TIMOPTIC [Concomitant]
     Route: 065
  3. ISOSORBIDE [Concomitant]
     Route: 065
  4. CARTIA (ASPIRIN) [Concomitant]
     Route: 065
  5. PRINIVIL [Concomitant]
     Route: 065
  6. ALLEGRA [Concomitant]
     Route: 065
  7. NOVOLIN [Concomitant]
     Indication: DIABETES MELLITUS
     Route: 065
  8. AMITRIPTYLINE HYDROCHLORIDE [Concomitant]
     Route: 065
  9. TRIAM-A [Concomitant]
     Route: 065
  10. ZOCOR [Concomitant]
     Indication: CEREBROVASCULAR ACCIDENT PROPHYLAXIS
     Route: 048
  11. ZOCOR [Concomitant]
     Indication: ISCHAEMIC HEART DISEASE PROPHYLAXIS
     Route: 048
  12. PLETAL [Concomitant]
     Route: 065
  13. NEUROTON [Concomitant]
     Indication: PAIN
     Route: 065

REACTIONS (2)
  - CEREBROVASCULAR ACCIDENT [None]
  - CERVIX DISORDER [None]
